FAERS Safety Report 11347574 (Version 1)
Quarter: 2015Q3

REPORT INFORMATION
  Report Type: Spontaneous
  Country: US (occurrence: US)
  Receive Date: 20150803
  Receipt Date: 20150803
  Transmission Date: 20151125
  Serious: No
  Sender: FDA-Public Use
  Company Number: US-ELI_LILLY_AND_COMPANY-US201103003683

PATIENT
  Age: 36 Year
  Sex: Male

DRUGS (4)
  1. DEXADRIN [Concomitant]
  2. ZOLOFT [Concomitant]
     Active Substance: SERTRALINE HYDROCHLORIDE
  3. KLONOPIN [Concomitant]
     Active Substance: CLONAZEPAM
  4. ZYPREXA [Suspect]
     Active Substance: OLANZAPINE
     Indication: DRUG DEPENDENCE
     Dosage: 5 MG, DAILY (1/D)
     Dates: start: 1998, end: 20110308

REACTIONS (7)
  - Intentional product misuse [Unknown]
  - Off label use [Recovered/Resolved]
  - Pruritus [Unknown]
  - Scratch [Unknown]
  - Rash [Unknown]
  - Decreased appetite [Unknown]
  - Withdrawal syndrome [Unknown]

NARRATIVE: CASE EVENT DATE: 20110308
